FAERS Safety Report 12378642 (Version 2)
Quarter: 2016Q2

REPORT INFORMATION
  Report Type: Spontaneous
  Country: US (occurrence: US)
  Receive Date: 20160517
  Receipt Date: 20160525
  Transmission Date: 20160815
  Serious: No
  Sender: FDA-Public Use
  Company Number: US-BAYER-2016-094357

PATIENT
  Age: 66 Year
  Sex: Male
  Weight: 54.42 kg

DRUGS (9)
  1. BAYER GENUINE ASPIRIN [Suspect]
     Active Substance: ASPIRIN
     Indication: ANALGESIC THERAPY
     Dosage: 10 TO 12 DF, QD
     Route: 048
     Dates: start: 201604, end: 20160510
  2. CENTRUM [Concomitant]
     Active Substance: VITAMINS
  3. ALEVE [Suspect]
     Active Substance: NAPROXEN SODIUM
     Indication: ANALGESIC THERAPY
     Dosage: 1 TABLET ON THE MORNING AND SOME HOURS LATER ANOTHER 2 TABLETS
     Route: 048
     Dates: start: 20160511, end: 20160511
  4. VITAMIN D3 [Concomitant]
     Active Substance: CHOLECALCIFEROL
  5. ALEVE [Suspect]
     Active Substance: NAPROXEN SODIUM
     Indication: ANALGESIC THERAPY
     Dosage: UNK
     Route: 048
     Dates: start: 20160512, end: 20160513
  6. VITAMIN C [Concomitant]
     Active Substance: ASCORBIC ACID
  7. DIAZEPAM. [Concomitant]
     Active Substance: DIAZEPAM
  8. FOLIC ACID. [Concomitant]
     Active Substance: FOLIC ACID
  9. ALEVE [Suspect]
     Active Substance: NAPROXEN SODIUM
     Indication: ANALGESIC THERAPY
     Dosage: 1 DF, UNK
     Route: 048
     Dates: start: 20160510, end: 20160510

REACTIONS (4)
  - Product use issue [None]
  - Labelled drug-drug interaction medication error [None]
  - Drug effect incomplete [None]
  - Drug ineffective [None]

NARRATIVE: CASE EVENT DATE: 201604
